FAERS Safety Report 5727779-0 (Version None)
Quarter: 2008Q2

REPORT INFORMATION
  Report Type: 
  Country: None (occurrence: None)
  Receive Date: 20080505
  Receipt Date: 20080423
  Transmission Date: 20081010
  Serious: Yes (Other)
  Sender: FDA-Public Use
  Company Number: US-PFIZER INC-2008026100

PATIENT
  Sex: Female
  Weight: 77.1 kg

DRUGS (8)
  1. LYRICA [Suspect]
     Indication: FIBROMYALGIA
     Route: 048
  2. LYRICA [Suspect]
     Indication: NECK PAIN
  3. DILAUDID [Concomitant]
  4. CRESTOR [Concomitant]
  5. ATIVAN [Concomitant]
  6. MORPHINE [Concomitant]
  7. CYMBALTA [Concomitant]
  8. TYLENOL [Concomitant]

REACTIONS (2)
  - EYELID OEDEMA [None]
  - SWELLING FACE [None]
